FAERS Safety Report 5899315-X (Version None)
Quarter: 2008Q3

REPORT INFORMATION
  Report Type: 
  Country: None (occurrence: None)
  Receive Date: 20080909
  Receipt Date: 20080428
  Transmission Date: 20090109
  Serious: Yes (Hospitalization)
  Sender: FDA-Public Use
  Company Number: US-WYE-H03832408

PATIENT
  Age: 48 Year
  Sex: Male

DRUGS (2)
  1. ADVIL [Suspect]
     Indication: PAIN MANAGEMENT
     Dosage: 6 CAPSULE 1X PER 1 DAY, ORAL
     Route: 048
     Dates: start: 20080201, end: 20080425
  2. ADVIL PM [Suspect]
     Indication: PAIN MANAGEMENT
     Dosage: 2 CAPLETS DAILY, ORAL
     Route: 048
     Dates: start: 20080201, end: 20080424

REACTIONS (2)
  - GASTRIC HAEMORRHAGE [None]
  - OVERDOSE [None]
